FAERS Safety Report 9054553 (Version 1)
Quarter: 2013Q1

REPORT INFORMATION
  Report Type: Spontaneous
  Country: DK (occurrence: GB)
  Receive Date: 20130208
  Receipt Date: 20130208
  Transmission Date: 20140127
  Serious: Yes (Life-Threatening, Hospitalization)
  Sender: FDA-Public Use
  Company Number: GB-FRI-1000042534

PATIENT
  Age: 45 Year
  Sex: Female
  Weight: 40 kg

DRUGS (10)
  1. CITALOPRAM [Suspect]
     Indication: DEPRESSION
     Dosage: 20 MG DAILY
     Route: 048
  2. CARBIMAZOLE [Suspect]
     Indication: HYPERTHYROIDISM
     Dosage: 20 MG DAILY
     Route: 048
  3. VENLAFAXINE [Suspect]
     Indication: DEPRESSION
     Dosage: 150 MG
     Route: 048
  4. ASPIRIN [Concomitant]
     Dosage: 75 MG
  5. DIAZEPAM [Concomitant]
     Dosage: 4 MG AS REQUIRED
  6. PROPRANOLOL [Concomitant]
     Dosage: 80 MG
  7. THIAMINE [Concomitant]
     Dosage: 300 MG
  8. THYROXINE SODIUM [Concomitant]
     Dosage: 25 MCG
  9. VITAMIN B COMPLEX STRONG [Concomitant]
     Dosage: 1 DOSAGE FORM TWICE DAILY
  10. VITAMINS A AND D [Concomitant]
     Dosage: 1 DOSAGE FORM DAILY

REACTIONS (1)
  - Neutropenic sepsis [Not Recovered/Not Resolved]
